FAERS Safety Report 9788075 (Version 1)
Quarter: 2013Q4

REPORT INFORMATION
  Report Type: Spontaneous
  Country: US (occurrence: None)
  Receive Date: 20131227
  Receipt Date: 20131227
  Transmission Date: 20140711
  Serious: Yes (Hospitalization)
  Sender: FDA-Public Use
  Company Number: None

PATIENT
  Age: 86 Year
  Sex: Male
  Weight: 82 kg

DRUGS (9)
  1. XARELTO [Suspect]
     Indication: ATRIAL FIBRILLATION
     Dosage: CHRONIC
     Route: 048
  2. AMBIEN [Concomitant]
  3. BETAMETHASONE [Concomitant]
  4. MVI [Concomitant]
  5. ZYRTEC [Concomitant]
  6. LANOXIN [Concomitant]
  7. MAG CHLORIDE [Concomitant]
  8. AZOR [Concomitant]
  9. PROTONIX [Concomitant]

REACTIONS (6)
  - Anaemia [None]
  - Gastrointestinal haemorrhage [None]
  - Occult blood positive [None]
  - Hypoxia [None]
  - Pneumonia [None]
  - Pleural effusion [None]
